FAERS Safety Report 15171014 (Version 1)
Quarter: 2018Q3

REPORT INFORMATION
  Report Type: Spontaneous
  Country: CA (occurrence: CA)
  Receive Date: 20180720
  Receipt Date: 20180720
  Transmission Date: 20181010
  Serious: Yes (Disabling)
  Sender: FDA-Public Use
  Company Number: CA-TEVA-2018-CA-925503

PATIENT
  Age: 41 Year
  Sex: Female
  Weight: 51 kg

DRUGS (2)
  1. ACT BUPROPION XL [Suspect]
     Active Substance: BUPROPION
     Indication: ASTHENIA
  2. ACT BUPROPION XL [Suspect]
     Active Substance: BUPROPION
     Indication: MOOD SWINGS
     Route: 048

REACTIONS (4)
  - Disturbance in attention [Recovered/Resolved]
  - Irritability [Recovered/Resolved]
  - Pain [Recovered/Resolved]
  - Asthenia [Recovered/Resolved]
